FAERS Safety Report 16391714 (Version 1)
Quarter: 2019Q2

REPORT INFORMATION
  Report Type: Spontaneous
  Country: US (occurrence: US)
  Receive Date: 20190605
  Receipt Date: 20190605
  Transmission Date: 20190711
  Serious: No
  Sender: FDA-Public Use
  Company Number: US-APOTEX-2018AP021119

PATIENT
  Sex: Female

DRUGS (1)
  1. AZELASTINE HYDROCHLORIDE. [Suspect]
     Active Substance: AZELASTINE HYDROCHLORIDE
     Indication: PRODUCT USED FOR UNKNOWN INDICATION
     Dosage: UNK
     Route: 065

REACTIONS (6)
  - Neck pain [Unknown]
  - Rhinorrhoea [Unknown]
  - Wheezing [Unknown]
  - Nausea [Unknown]
  - Hyperhidrosis [Unknown]
  - Sneezing [Unknown]
